FAERS Safety Report 20455821 (Version 1)
Quarter: 2022Q1

REPORT INFORMATION
  Report Type: Spontaneous
  Country: US (occurrence: None)
  Receive Date: 20220210
  Receipt Date: 20220210
  Transmission Date: 20220423
  Serious: Yes (Other)
  Sender: FDA-Public Use
  Company Number: None

PATIENT
  Age: 76 Year
  Sex: Female

DRUGS (1)
  1. RITUXAN [Suspect]
     Active Substance: RITUXIMAB
     Indication: Rheumatoid arthritis
     Dosage: 500MG/50ML? ?INFUSE 1,000 MG INTRAVENOUSLY ON DAYS 1 AND 15 EVERY 6 MONTHS?
     Route: 042
     Dates: start: 20210217

REACTIONS (3)
  - Upper limb fracture [None]
  - Product supply issue [None]
  - Product dose omission issue [None]

NARRATIVE: CASE EVENT DATE: 20220202
